FAERS Safety Report 23875315 (Version 1)
Quarter: 2024Q2

REPORT INFORMATION
  Report Type: Spontaneous
  Country: US (occurrence: None)
  Receive Date: 20240519
  Receipt Date: 20240519
  Transmission Date: 20240716
  Serious: Yes (Other)
  Sender: FDA-Public Use
  Company Number: None

PATIENT
  Age: 13 Year
  Sex: Male
  Weight: 28.8 kg

DRUGS (2)
  1. MUCINEX [Suspect]
     Active Substance: GUAIFENESIN
     Indication: Respiratory tract congestion
     Dosage: TWICE A DAY ORAL
     Route: 048
     Dates: start: 20240513, end: 20240517
  2. ALLEGRA [Concomitant]
     Dosage: TWICE A DAY ORAL
     Route: 048
     Dates: start: 20240513, end: 20240517

REACTIONS (2)
  - Erythema [None]
  - Petechiae [None]

NARRATIVE: CASE EVENT DATE: 20240516
